FAERS Safety Report 10666195 (Version 6)
Quarter: 2015Q1

REPORT INFORMATION
  Report Type: Report from Study
  Country: US (occurrence: US)
  Receive Date: 20141219
  Receipt Date: 20150312
  Transmission Date: 20150720
  Serious: Yes (Hospitalization, Other)
  Sender: FDA-Public Use
  Company Number: US-ACTELION-A-NJ2014-109315

PATIENT
  Age: 64 Year
  Sex: Female

DRUGS (2)
  1. REVATIO [Concomitant]
     Active Substance: SILDENAFIL CITRATE
  2. VENTAVIS [Suspect]
     Active Substance: ILOPROST
     Indication: PULMONARY HYPERTENSION
     Dosage: 5 MCG, 5-9X/DAY
     Route: 055
     Dates: start: 20130221

REACTIONS (9)
  - Upper limb fracture [Unknown]
  - Femur fracture [Unknown]
  - Contusion [Unknown]
  - Insomnia [Unknown]
  - Rotator cuff syndrome [Unknown]
  - Device issue [Unknown]
  - Lower limb fracture [Unknown]
  - Fall [Unknown]
  - Drug dose omission [Unknown]
